FAERS Safety Report 6438648-5 (Version None)
Quarter: 2009Q4

REPORT INFORMATION
  Report Type: 
  Country: None (occurrence: None)
  Receive Date: 20091110
  Receipt Date: 20091030
  Transmission Date: 20100525
  Serious: Yes (Other)
  Sender: FDA-Public Use
  Company Number: 2009AP004177

PATIENT
  Age: 38 Year
  Sex: Male

DRUGS (6)
  1. GABAPENTIN [Suspect]
     Indication: ANXIETY
     Dosage: 2400 MG; QD;, 4800 MG; QD;
  2. GABAPENTIN [Suspect]
     Indication: DEPRESSION
     Dosage: 2400 MG; QD;, 4800 MG; QD;
  3. GABAPENTIN [Suspect]
     Indication: HEADACHE
     Dosage: 2400 MG; QD;, 4800 MG; QD;
  4. BUSPIRONE HCL [Concomitant]
  5. BUPROPION HCL [Concomitant]
  6. ATENOLOL [Concomitant]

REACTIONS (21)
  - ANXIETY [None]
  - COGNITIVE DISORDER [None]
  - CONFUSIONAL STATE [None]
  - DELIRIUM [None]
  - DEPERSONALISATION [None]
  - DEPRESSION [None]
  - DEREALISATION [None]
  - DISTURBANCE IN ATTENTION [None]
  - DISTURBANCE IN SOCIAL BEHAVIOUR [None]
  - DRUG ABUSE [None]
  - DRUG DEPENDENCE [None]
  - DRUG TOXICITY [None]
  - HEADACHE [None]
  - IMPAIRED DRIVING ABILITY [None]
  - IMPAIRED WORK ABILITY [None]
  - MEMORY IMPAIRMENT [None]
  - MIGRAINE [None]
  - PARAESTHESIA [None]
  - SELF-MEDICATION [None]
  - SOMNOLENCE [None]
  - WITHDRAWAL SYNDROME [None]
